FAERS Safety Report 18306697 (Version 1)
Quarter: 2020Q3

REPORT INFORMATION
  Report Type: Spontaneous
  Country: CZ (occurrence: CZ)
  Receive Date: 20200924
  Receipt Date: 20200924
  Transmission Date: 20201103
  Serious: Yes (Hospitalization)
  Sender: FDA-Public Use
  Company Number: CZ-PFIZER INC-2020367937

PATIENT
  Age: 52 Year
  Sex: Male

DRUGS (3)
  1. LYRICA [Suspect]
     Active Substance: PREGABALIN
     Indication: PAIN
     Dosage: 100 MG (2 TABLETS)
     Route: 048
     Dates: start: 20200820, end: 20200820
  2. FOXIS [PARACETAMOL;TRAMADOL HYDROCHLORIDE] [Concomitant]
     Indication: PAIN
     Dosage: 37.5MG/325MG2?1?2 TABLET DOSE
     Route: 048
  3. TOLURA [Concomitant]
     Active Substance: TELMISARTAN
     Indication: BLOOD PRESSURE ABNORMAL
     Dosage: 1?0?0, ONE DF IN THE MORNING
     Dates: start: 2014, end: 202007

REACTIONS (2)
  - Syncope [Recovered/Resolved]
  - Generalised tonic-clonic seizure [Recovered/Resolved]

NARRATIVE: CASE EVENT DATE: 20200820
